FAERS Safety Report 4489930-2 (Version None)
Quarter: 2004Q4

REPORT INFORMATION
  Report Type: 
  Country: None (occurrence: None)
  Receive Date: 20041101
  Receipt Date: 20040715
  Transmission Date: 20050328
  Serious: Yes (Other)
  Sender: FDA-Public Use
  Company Number: US-GLAXOSMITHKLINE-A0518725A

PATIENT
  Age: 37 Year
  Sex: Female

DRUGS (3)
  1. LAMICTAL [Suspect]
     Indication: AFFECTIVE DISORDER
     Route: 048
     Dates: start: 20031007
  2. LEXAPRO [Concomitant]
     Indication: DEPRESSION
     Dosage: 30MG IN THE MORNING
     Route: 048
  3. SEROQUEL [Concomitant]
     Indication: SLEEP DISORDER
     Dosage: 200MG AT NIGHT
     Route: 048

REACTIONS (2)
  - CHOKING [None]
  - PHARMACEUTICAL PRODUCT COMPLAINT [None]
